FAERS Safety Report 20694799 (Version 1)
Quarter: 2022Q2

REPORT INFORMATION
  Report Type: Spontaneous
  Country: US (occurrence: US)
  Receive Date: 20220411
  Receipt Date: 20220411
  Transmission Date: 20220721
  Serious: Yes (Other)
  Sender: FDA-Public Use
  Company Number: US-APOTEX-2022AP005605

PATIENT
  Age: 95 Year
  Sex: Female

DRUGS (2)
  1. FLECAINIDE [Suspect]
     Active Substance: FLECAINIDE
     Indication: Atrial fibrillation
     Dosage: UNK
     Route: 065
  2. METOPROLOL [Concomitant]
     Active Substance: METOPROLOL
     Indication: Atrial fibrillation
     Dosage: UNK
     Route: 065

REACTIONS (6)
  - Electrocardiogram QRS complex prolonged [Recovered/Resolved]
  - Bradycardia [Unknown]
  - Electrocardiogram QRS complex abnormal [Recovered/Resolved]
  - Bundle branch block right [Unknown]
  - Bundle branch block left [Unknown]
  - Toxicity to various agents [Unknown]
